FAERS Safety Report 5335837-8 (Version None)
Quarter: 2007Q2

REPORT INFORMATION
  Report Type: 
  Country: None (occurrence: None)
  Receive Date: 20070315
  Receipt Date: 20060517
  Transmission Date: 20071010
  Serious: Yes (Life-Threatening, Hospitalization, Disabling)
  Sender: FDA-Public Use
  Company Number: GXBR2006US01303

PATIENT
  Age: 48 Year
  Sex: Female

DRUGS (4)
  1. NABUMETONE [Suspect]
     Indication: PAIN IN EXTREMITY
     Dates: end: 20050404
  2. LISINOPRIL [Suspect]
  3. CLARITIN [Suspect]
     Indication: SEASONAL ALLERGY
  4. ATENOLOL [Concomitant]

REACTIONS (26)
  - ANAEMIA [None]
  - ANXIETY [None]
  - BLISTER [None]
  - BURNS THIRD DEGREE [None]
  - DEPRESSION [None]
  - DIABETES MELLITUS [None]
  - DRUG INTERACTION [None]
  - DYSPNOEA [None]
  - FATIGUE [None]
  - GASTROINTESTINAL TUBE INSERTION [None]
  - HYPOAESTHESIA [None]
  - INTUBATION [None]
  - MUCOSAL EXFOLIATION [None]
  - MUCOSAL HAEMORRHAGE [None]
  - ORAL PAIN [None]
  - PAIN [None]
  - PARAESTHESIA [None]
  - PHOTOSENSITIVITY REACTION [None]
  - PNEUMONIA [None]
  - RASH PRURITIC [None]
  - SCAR [None]
  - STAPHYLOCOCCAL BACTERAEMIA [None]
  - SWELLING [None]
  - TENDERNESS [None]
  - TOXIC EPIDERMAL NECROLYSIS [None]
  - URINARY INCONTINENCE [None]
